FAERS Safety Report 14823546 (Version 3)
Quarter: 2018Q2

REPORT INFORMATION
  Report Type: Report from Study
  Country: None (occurrence: PE)
  Receive Date: 20180428
  Receipt Date: 20180526
  Transmission Date: 20180711
  Serious: Yes (Hospitalization, Other)
  Sender: FDA-Public Use
  Company Number: PE-ABBVIE-18K-127-2338917-00

PATIENT
  Age: 36 Year
  Sex: Male
  Weight: 68 kg

DRUGS (2)
  1. OMEPRAZOLE. [Concomitant]
     Active Substance: OMEPRAZOLE
     Indication: PRODUCT USED FOR UNKNOWN INDICATION
  2. HUMIRA [Suspect]
     Active Substance: ADALIMUMAB
     Indication: CROHN^S DISEASE
     Route: 058
     Dates: start: 201604

REACTIONS (7)
  - Oral mucosal blistering [Recovered/Resolved]
  - Blister [Recovered/Resolved]
  - Gastrointestinal necrosis [Unknown]
  - Nephrolithiasis [Recovered/Resolved]
  - Nasal congestion [Recovering/Resolving]
  - Tongue blistering [Recovered/Resolved]
  - Crohn^s disease [Recovering/Resolving]

NARRATIVE: CASE EVENT DATE: 201803
